FAERS Safety Report 8392266-0 (Version None)
Quarter: 2012Q2

REPORT INFORMATION
  Report Type: 
  Country: None (occurrence: None)
  Receive Date: 20120529
  Receipt Date: 20120518
  Transmission Date: 20120825
  Serious: Yes (Other)
  Sender: FDA-Public Use
  Company Number: US-JNJFOC-20120516205

PATIENT
  Sex: Female
  Weight: 77.11 kg

DRUGS (2)
  1. ADDERALL 5 [Concomitant]
     Indication: ATTENTION DEFICIT/HYPERACTIVITY DISORDER
     Route: 048
     Dates: start: 20070101
  2. REMICADE [Suspect]
     Indication: COLITIS ULCERATIVE
     Route: 042
     Dates: start: 20120101

REACTIONS (8)
  - MENTAL IMPAIRMENT [None]
  - DRUG EFFECT DECREASED [None]
  - VIRAL INFECTION [None]
  - LETHARGY [None]
  - SENSORY DISTURBANCE [None]
  - PAIN [None]
  - FEELING ABNORMAL [None]
  - ASTHENIA [None]
